FAERS Safety Report 23374763 (Version 1)
Quarter: 2024Q1

REPORT INFORMATION
  Report Type: Report from Study
  Country: NL (occurrence: NL)
  Receive Date: 20240106
  Receipt Date: 20240106
  Transmission Date: 20240410
  Serious: Yes (Death)
  Sender: FDA-Public Use
  Company Number: NL-ABBVIE-5571755

PATIENT
  Age: 70 Year
  Sex: Male

DRUGS (4)
  1. CARBIDOPA\LEVODOPA [Suspect]
     Active Substance: CARBIDOPA\LEVODOPA
     Indication: Parkinson^s disease
     Dosage: MD: 10.0ML, CD: 5.3ML/H, ED: 3.0ML, CND: 2.5ML, END: 3.0ML
     Route: 050
     Dates: start: 20231109
  2. CARBIDOPA\LEVODOPA [Suspect]
     Active Substance: CARBIDOPA\LEVODOPA
     Dosage: MD: 10.0ML, CD: 5.3ML/H, ED: 3.0ML, CND: 2.5ML?REMAINS AT 24 HOURS
     Route: 050
     Dates: start: 20230531, end: 20230904
  3. CARBIDOPA\LEVODOPA [Suspect]
     Active Substance: CARBIDOPA\LEVODOPA
     Dosage: MD: 10.0ML, CD: 5.3ML/H, ED: 3.0ML, CND: 2.5ML, END: 3.0ML?REMAINS AT 16 HOURS
     Route: 050
     Dates: start: 20230904, end: 20231109
  4. CARBIDOPA\LEVODOPA [Suspect]
     Active Substance: CARBIDOPA\LEVODOPA
     Dosage: REMAINS AT 24 HOURS
     Route: 050
     Dates: start: 20180321

REACTIONS (1)
  - Cardiac disorder [Fatal]
